FAERS Safety Report 11931603 (Version 1)
Quarter: 2016Q1

REPORT INFORMATION
  Report Type: Spontaneous
  Country: US (occurrence: US)
  Receive Date: 20160120
  Receipt Date: 20160120
  Transmission Date: 20160526
  Serious: No
  Sender: FDA-Public Use
  Company Number: US-INCYTE CORPORATION-2015IN005421

PATIENT
  Sex: Female

DRUGS (15)
  1. AMLODIPINE [Concomitant]
     Active Substance: AMLODIPINE BESYLATE
  2. TURMERIC                           /01079602/ [Concomitant]
  3. LEVOTHYROXINE. [Concomitant]
     Active Substance: LEVOTHYROXINE
  4. FENOBIBRATE [Concomitant]
  5. VITAMIN B12 [Concomitant]
     Active Substance: CYANOCOBALAMIN
  6. CARVEDILOL. [Concomitant]
     Active Substance: CARVEDILOL
  7. HYDROCHOROTHIAZIDE [Concomitant]
     Active Substance: HYDROCHLOROTHIAZIDE
  8. OMEPRAZOLE. [Concomitant]
     Active Substance: OMEPRAZOLE
  9. ALENDRONATE [Concomitant]
     Active Substance: ALENDRONATE SODIUM
  10. FISH OIL [Concomitant]
     Active Substance: FISH OIL
  11. HYDREA [Concomitant]
     Active Substance: HYDROXYUREA
  12. OSTEO BI-FLEX                      /01431201/ [Concomitant]
  13. JAKAFI [Suspect]
     Active Substance: RUXOLITINIB
     Indication: MYELOFIBROSIS
     Dosage: 5 MG, QD
     Dates: start: 201509
  14. TYLENOL [Concomitant]
     Active Substance: ACETAMINOPHEN
  15. CALCIUM [Concomitant]
     Active Substance: CALCIUM

REACTIONS (8)
  - Decreased appetite [Unknown]
  - Pruritus [Unknown]
  - Headache [Unknown]
  - Hot flush [Unknown]
  - Night sweats [Unknown]
  - Lip pain [Unknown]
  - Fatigue [Unknown]
  - Dizziness [Unknown]

NARRATIVE: CASE EVENT DATE: 2015
